FAERS Safety Report 6925567-0 (Version None)
Quarter: 2010Q3

REPORT INFORMATION
  Report Type: 
  Country: None (occurrence: None)
  Receive Date: 20100816
  Receipt Date: 20100806
  Transmission Date: 20110219
  Serious: Yes (Death)
  Sender: FDA-Public Use
  Company Number: FR-ROCHE-718081

PATIENT
  Sex: Female
  Weight: 61 kg

DRUGS (2)
  1. BEVACIZUMAB [Suspect]
     Dosage: FORM:INJECTION
     Route: 042
     Dates: start: 20100517, end: 20100628
  2. CAELYX [Suspect]
     Dosage: FREQ PER PROTOCOL
     Route: 042
     Dates: start: 20100517, end: 20100614

REACTIONS (2)
  - GASTROINTESTINAL HAEMORRHAGE [None]
  - MALIGNANT NEOPLASM PROGRESSION [None]
